FAERS Safety Report 8926202 (Version 2)
Quarter: 2013Q1

REPORT INFORMATION
  Report Type: Spontaneous
  Country: US (occurrence: US)
  Receive Date: 20121126
  Receipt Date: 20130201
  Transmission Date: 20140127
  Serious: Yes (Hospitalization, Disabling)
  Sender: FDA-Public Use
  Company Number: US-BAYER-2012-120775

PATIENT
  Age: 39 Year
  Sex: Female
  Weight: 90.7 kg

DRUGS (14)
  1. YASMIN [Suspect]
     Indication: CONTRACEPTION
  2. YASMIN [Suspect]
     Indication: DYSMENORRHOEA
  3. YASMIN [Suspect]
     Indication: PREMENSTRUAL SYNDROME
  4. OCELLA [Suspect]
     Indication: CONTRACEPTION
  5. OCELLA [Suspect]
     Indication: DYSMENORRHOEA
  6. OCELLA [Suspect]
     Indication: PREMENSTRUAL SYNDROME
  7. DIOVAN [Concomitant]
     Dosage: UNK
     Dates: start: 2008
  8. TOPIRAMATE [Concomitant]
     Dosage: 50 MG, UNK
     Dates: start: 2008
  9. ROXICET [Concomitant]
     Dosage: 5-325 TABLET
  10. SUMATRIPTAN SUCCINATE [Concomitant]
     Dosage: 50 MG, UNK
  11. AZITHROMYCIN [Concomitant]
     Dosage: 250 MG, UNK
  12. HYDROCODONE W/ACETAMINOPHEN [Concomitant]
     Dosage: 5-325 TABLET
  13. IMITREX [Concomitant]
  14. CYCLOBENZAPRINE [Concomitant]
     Dosage: 10 MG, UNK

REACTIONS (16)
  - Pulmonary embolism [None]
  - Thrombosis [None]
  - Deep vein thrombosis [None]
  - Bladder disorder [None]
  - Pain in extremity [None]
  - Local swelling [None]
  - Limb deformity [None]
  - Venous injury [None]
  - Injury [None]
  - Deformity [None]
  - Anhedonia [None]
  - Anxiety [None]
  - Traumatic lung injury [None]
  - Coagulopathy [None]
  - Fear of disease [None]
  - Fear of death [None]
